FAERS Safety Report 7262186-3 (Version None)
Quarter: 2011Q1

REPORT INFORMATION
  Report Type: 
  Country: None (occurrence: None)
  Receive Date: 20110130
  Receipt Date: 20101201
  Transmission Date: 20110831
  Serious: No
  Sender: FDA-Public Use
  Company Number: US-ABBOTT-10P-163-0689282-00

PATIENT
  Weight: 68.1 kg

DRUGS (2)
  1. CETIRIZINE [Concomitant]
     Indication: HYPERSENSITIVITY
     Dates: start: 20100601
  2. HUMIRA [Suspect]
     Indication: RHEUMATOID ARTHRITIS
     Dates: start: 20100401, end: 20100601

REACTIONS (3)
  - PRURITUS [None]
  - RASH [None]
  - OPEN WOUND [None]
